FAERS Safety Report 8206144-0 (Version None)
Quarter: 2012Q1

REPORT INFORMATION
  Report Type: 
  Country: None (occurrence: None)
  Receive Date: 20120313
  Receipt Date: 20120307
  Transmission Date: 20120608
  Serious: Yes (Other)
  Sender: FDA-Public Use
  Company Number: US-ABBOTT-12P-163-0912465-00

PATIENT
  Sex: Female
  Weight: 70.37 kg

DRUGS (6)
  1. OMEPRAZOLE [Concomitant]
     Indication: DYSPEPSIA
  2. OMEPRAZOLE [Concomitant]
     Indication: CROHN'S DISEASE
  3. HUMIRA [Suspect]
     Indication: CROHN'S DISEASE
     Dates: start: 20100101, end: 20110101
  4. HUMIRA [Suspect]
     Dates: start: 20110101
  5. PROZAC [Concomitant]
     Indication: DEPRESSION
     Dates: start: 19920101
  6. AMBIEN [Concomitant]
     Indication: SLEEP DISORDER THERAPY
     Dosage: ONCE IN AWHILE

REACTIONS (12)
  - NERVE ROOT COMPRESSION [None]
  - VISUAL IMPAIRMENT [None]
  - SENSORY DISTURBANCE [None]
  - MOBILITY DECREASED [None]
  - HEADACHE [None]
  - CROHN'S DISEASE [None]
  - ABASIA [None]
  - RAYNAUD'S PHENOMENON [None]
  - HYPOAESTHESIA [None]
  - HEMIPARESIS [None]
  - VISION BLURRED [None]
  - PAIN IN EXTREMITY [None]
